FAERS Safety Report 14636775 (Version 1)
Quarter: 2018Q1

REPORT INFORMATION
  Report Type: Spontaneous
  Country: ES (occurrence: ES)
  Receive Date: 20180314
  Receipt Date: 20180314
  Transmission Date: 20180509
  Serious: Yes (Hospitalization)
  Sender: FDA-Public Use
  Company Number: ES-TEVA-2018-ES-867341

PATIENT
  Age: 82 Year
  Sex: Male

DRUGS (4)
  1. SINTROM [Concomitant]
     Active Substance: ACENOCOUMAROL
     Route: 048
     Dates: start: 20161110
  2. VERAPAMILO (3203A) [Concomitant]
     Active Substance: VERAPAMIL HYDROCHLORIDE
     Route: 048
     Dates: start: 20160112
  3. TAMSULOSIN (2751CH) [Suspect]
     Active Substance: TAMSULOSIN
     Route: 048
     Dates: start: 20171026, end: 20180104
  4. BETAHISTINA (489A) [Concomitant]
     Dates: start: 20161110

REACTIONS (3)
  - Palpitations [Recovering/Resolving]
  - Syncope [Recovering/Resolving]
  - Hyperhidrosis [Recovering/Resolving]

NARRATIVE: CASE EVENT DATE: 20171226
